FAERS Safety Report 18293781 (Version 3)
Quarter: 2021Q2

REPORT INFORMATION
  Report Type: Other
  Country: US (occurrence: US)
  Receive Date: 20200921
  Receipt Date: 20210621
  Transmission Date: 20210717
  Serious: No
  Sender: FDA-Public Use
  Company Number: US-ACORDA-ACO_166127_2020

PATIENT
  Age: 67 Year
  Sex: Male

DRUGS (2)
  1. INBRIJA [Suspect]
     Active Substance: LEVODOPA
     Indication: PARKINSON^S DISEASE
     Dosage: 84 MILLIGRAM, PRN, UP TO 5 PER DAY
     Dates: start: 20200208
  2. INBRIJA [Suspect]
     Active Substance: LEVODOPA
     Indication: ON AND OFF PHENOMENON

REACTIONS (9)
  - Incorrect dose administered by device [Unknown]
  - Adverse event [Unknown]
  - Dry mouth [Unknown]
  - Mobility decreased [Unknown]
  - Dysarthria [Unknown]
  - Ill-defined disorder [Unknown]
  - Mucosal discolouration [Unknown]
  - Device occlusion [Unknown]
  - Condition aggravated [Unknown]

NARRATIVE: CASE EVENT DATE: 20210219
